FAERS Safety Report 8848265 (Version 1)
Quarter: 2012Q4

REPORT INFORMATION
  Report Type: Report from Study
  Country: CA (occurrence: CA)
  Receive Date: 20121018
  Receipt Date: 20121018
  Transmission Date: 20130627
  Serious: Yes (Hospitalization)
  Sender: FDA-Public Use
  Company Number: CA-ROCHE-1146035

PATIENT
  Sex: Male

DRUGS (2)
  1. VEMURAFENIB [Suspect]
     Indication: METASTATIC MALIGNANT MELANOMA
     Route: 048
     Dates: start: 20120924, end: 20121003
  2. TYLENOL #3 (CANADA) [Concomitant]

REACTIONS (1)
  - Disease progression [Not Recovered/Not Resolved]
